FAERS Safety Report 6433421-6 (Version None)
Quarter: 2009Q4

REPORT INFORMATION
  Report Type: 
  Country: None (occurrence: None)
  Receive Date: 20091106
  Receipt Date: 20091106
  Transmission Date: 20100525
  Serious: Yes (Life-Threatening, Other)
  Sender: FDA-Public Use
  Company Number: None

PATIENT
  Age: 21 Year
  Sex: Female
  Weight: 61.2356 kg

DRUGS (3)
  1. YAZ [Suspect]
     Indication: ACNE
     Dosage: 1 PILL DAILY PO
     Route: 048
     Dates: start: 20070401, end: 20070601
  2. YAZ [Suspect]
     Indication: CONTRACEPTION
     Dosage: 1 PILL DAILY PO
     Route: 048
     Dates: start: 20070401, end: 20070601
  3. YAZ [Suspect]
     Indication: MENSTRUATION IRREGULAR
     Dosage: 1 PILL DAILY PO
     Route: 048
     Dates: start: 20070401, end: 20070601

REACTIONS (8)
  - DYSMENORRHOEA [None]
  - ERUCTATION [None]
  - GALLBLADDER DISORDER [None]
  - HOT FLUSH [None]
  - LIVER INJURY [None]
  - NAUSEA [None]
  - POLYMENORRHOEA [None]
  - RETCHING [None]
